FAERS Safety Report 15124018 (Version 4)
Quarter: 2019Q1

REPORT INFORMATION
  Report Type: Spontaneous
  Country: US (occurrence: US)
  Receive Date: 20180710
  Receipt Date: 20190301
  Transmission Date: 20190417
  Serious: Yes (Hospitalization, Other)
  Sender: FDA-Public Use
  Company Number: US-ASTRAZENECA-2018SE86045

PATIENT
  Age: 23331 Day
  Sex: Female
  Weight: 115.7 kg

DRUGS (40)
  1. LANTUS [Concomitant]
     Active Substance: INSULIN GLARGINE
  2. DOCUSATE [Concomitant]
     Active Substance: DOCUSATE
  3. SYNTHROID [Concomitant]
     Active Substance: LEVOTHYROXINE SODIUM
  4. PRILOSEC [Suspect]
     Active Substance: OMEPRAZOLE MAGNESIUM
     Route: 048
     Dates: start: 20000101
  5. AMITRIPTYLINE [Concomitant]
     Active Substance: AMITRIPTYLINE
  6. ATORVASTATIN [Concomitant]
     Active Substance: ATORVASTATIN
  7. LORATADINE. [Concomitant]
     Active Substance: LORATADINE
  8. NEXIUM [Suspect]
     Active Substance: ESOMEPRAZOLE MAGNESIUM
     Indication: GASTROOESOPHAGEAL REFLUX DISEASE
     Route: 048
     Dates: start: 1990
  9. DOCUSATE SODIUM. [Concomitant]
     Active Substance: DOCUSATE SODIUM
  10. GABAPENTIN. [Concomitant]
     Active Substance: GABAPENTIN
  11. LEVOTHYROXINE SODIUM. [Concomitant]
     Active Substance: LEVOTHYROXINE SODIUM
  12. LIDOCAINE. [Concomitant]
     Active Substance: LIDOCAINE
  13. NORCO [Concomitant]
     Active Substance: ACETAMINOPHEN\HYDROCODONE BITARTRATE
  14. METHADONE [Concomitant]
     Active Substance: METHADONE HYDROCHLORIDE
  15. FUROSEMIDE. [Concomitant]
     Active Substance: FUROSEMIDE
  16. LORATADINE. [Concomitant]
     Active Substance: LORATADINE
  17. VENLAFAXINE [Concomitant]
     Active Substance: VENLAFAXINE HYDROCHLORIDE
  18. EXALGO [Concomitant]
     Active Substance: HYDROMORPHONE HYDROCHLORIDE
  19. ASPIRIN. [Concomitant]
     Active Substance: ASPIRIN
  20. HUMALOG [Concomitant]
     Active Substance: INSULIN LISPRO
  21. CEFAZOLIN [Concomitant]
     Active Substance: CEFAZOLIN
  22. TYLENOL [Concomitant]
     Active Substance: ACETAMINOPHEN
  23. CLINDAMYCIN. [Concomitant]
     Active Substance: CLINDAMYCIN
  24. RANITIDINE. [Concomitant]
     Active Substance: RANITIDINE
  25. NORVASC [Concomitant]
     Active Substance: AMLODIPINE BESYLATE
     Indication: BLOOD PRESSURE MEASUREMENT
  26. PROLENSA [Concomitant]
     Active Substance: BROMFENAC SODIUM
  27. HYDROMORPHONE [Concomitant]
     Active Substance: HYDROMORPHONE
  28. METOPROLOL. [Concomitant]
     Active Substance: METOPROLOL
  29. NALOXONE [Concomitant]
     Active Substance: NALOXONE
  30. NEXIUM [Suspect]
     Active Substance: ESOMEPRAZOLE MAGNESIUM
     Indication: GASTROOESOPHAGEAL REFLUX DISEASE
     Route: 048
     Dates: start: 2011, end: 2016
  31. HYDROCODONE-ACETAMINOPHEN [Concomitant]
     Active Substance: ACETAMINOPHEN\HYDROCODONE
  32. FEXOFENADINE [Concomitant]
     Active Substance: FEXOFENADINE\FEXOFENADINE HYDROCHLORIDE
  33. LANSOPRAZOLE. [Concomitant]
     Active Substance: LANSOPRAZOLE
  34. PROTONIX [Suspect]
     Active Substance: PANTOPRAZOLE SODIUM
     Route: 065
     Dates: start: 2011, end: 2014
  35. BENAZEPRIL [Concomitant]
     Active Substance: BENAZEPRIL HYDROCHLORIDE
  36. ATORVASTATIN [Concomitant]
     Active Substance: ATORVASTATIN
  37. VICTOZA [Concomitant]
     Active Substance: LIRAGLUTIDE
  38. SEPTRA [Concomitant]
     Active Substance: SULFAMETHOXAZOLE\TRIMETHOPRIM
  39. COLACE [Concomitant]
     Active Substance: DOCUSATE SODIUM
  40. GABAPENTIN. [Concomitant]
     Active Substance: GABAPENTIN

REACTIONS (5)
  - Renal injury [Unknown]
  - Acute kidney injury [Unknown]
  - Chronic kidney disease [Not Recovered/Not Resolved]
  - Renal disorder [Unknown]
  - Renal failure [Unknown]

NARRATIVE: CASE EVENT DATE: 20140604
